FAERS Safety Report 11052329 (Version 1)
Quarter: 2015Q2

REPORT INFORMATION
  Report Type: Report from Study
  Country: GB (occurrence: GB)
  Receive Date: 20150421
  Receipt Date: 20150421
  Transmission Date: 20150821
  Serious: Yes (Other)
  Sender: FDA-Public Use
  Company Number: GB-ABBVIE-15K-167-1338738-00

PATIENT
  Sex: Female

DRUGS (1)
  1. HUMIRA [Suspect]
     Active Substance: ADALIMUMAB
     Indication: PRODUCT USED FOR UNKNOWN INDICATION
     Route: 058
     Dates: start: 201409, end: 20150126

REACTIONS (14)
  - Tinnitus [Recovering/Resolving]
  - Gastrooesophageal reflux disease [Recovering/Resolving]
  - Insomnia [Recovering/Resolving]
  - Heart rate irregular [Recovering/Resolving]
  - Irritability [Recovering/Resolving]
  - Rheumatoid arthritis [Unknown]
  - Lacrimation increased [Unknown]
  - Feeling abnormal [Unknown]
  - Mood swings [Unknown]
  - Depressed mood [Recovering/Resolving]
  - Depression [Unknown]
  - Asthenia [Recovering/Resolving]
  - Eye disorder [Recovering/Resolving]
  - Psoriatic arthropathy [Unknown]
